FAERS Safety Report 16107133 (Version 1)
Quarter: 2019Q1

REPORT INFORMATION
  Report Type: Spontaneous
  Country: PL (occurrence: PL)
  Receive Date: 20190322
  Receipt Date: 20190322
  Transmission Date: 20190418
  Serious: Yes (Hospitalization, Other)
  Sender: FDA-Public Use
  Company Number: PL-BAUSCH-BL-2019-008552

PATIENT
  Age: 38 Year
  Sex: Female

DRUGS (5)
  1. LATANOPROST. [Suspect]
     Active Substance: LATANOPROST
     Indication: INTRAOCULAR PRESSURE INCREASED
     Route: 047
  2. ALPHAGAN P [Suspect]
     Active Substance: BRIMONIDINE TARTRATE
     Indication: INTRAOCULAR PRESSURE INCREASED
     Route: 047
  3. TIMOLOL. [Suspect]
     Active Substance: TIMOLOL
     Indication: INTRAOCULAR PRESSURE INCREASED
     Route: 047
  4. DORZOLAMIDE [Suspect]
     Active Substance: DORZOLAMIDE
     Indication: INTRAOCULAR PRESSURE INCREASED
     Route: 047
  5. ACETAZOLAMIDE. [Suspect]
     Active Substance: ACETAZOLAMIDE
     Indication: INTRAOCULAR PRESSURE INCREASED
     Route: 048

REACTIONS (3)
  - Drug ineffective [Unknown]
  - Choroidal effusion [Recovered/Resolved]
  - Intraocular pressure increased [Recovered/Resolved]
